FAERS Safety Report 24776543 (Version 2)
Quarter: 2025Q1

REPORT INFORMATION
  Report Type: Spontaneous
  Country: CN (occurrence: CN)
  Receive Date: 20241226
  Receipt Date: 20250107
  Transmission Date: 20250416
  Serious: Yes (Other)
  Sender: ORGANON
  Company Number: CN-ORGANON-O2412CHN001893

PATIENT
  Age: 61 Year
  Sex: Male
  Weight: 75 kg

DRUGS (1)
  1. REMERON [Suspect]
     Active Substance: MIRTAZAPINE
     Indication: Somatic symptom disorder
     Dosage: GRADUALLY INCREASED FROM 3.75 MG TO 15 MG PER DAY
     Route: 048
     Dates: start: 20240904, end: 20241202

REACTIONS (2)
  - Cholinergic syndrome [Not Recovered/Not Resolved]
  - Product use in unapproved indication [Unknown]

NARRATIVE: CASE EVENT DATE: 20240904
